FAERS Safety Report 25016397 (Version 2)
Quarter: 2025Q1

REPORT INFORMATION
  Report Type: Spontaneous
  Country: US (occurrence: US)
  Receive Date: 20250227
  Receipt Date: 20250326
  Transmission Date: 20250409
  Serious: No
  Sender: APOTEX
  Company Number: US-APOTEX-2025AP002070

PATIENT
  Sex: Male

DRUGS (1)
  1. FLUTICASONE [Suspect]
     Active Substance: FLUTICASONE
     Indication: Nasal congestion
     Dosage: 4 DOSAGE FORM, QD
     Route: 045

REACTIONS (2)
  - Product dose omission issue [Unknown]
  - Product leakage [Unknown]
